FAERS Safety Report 5063648-X (Version None)
Quarter: 2006Q3

REPORT INFORMATION
  Report Type: 
  Country: None (occurrence: None)
  Receive Date: 20060724
  Receipt Date: 20060712
  Transmission Date: 20061208
  Serious: Yes (Hospitalization)
  Sender: FDA-Public Use
  Company Number: 227348

PATIENT
  Age: 12 Year
  Sex: Male

DRUGS (1)
  1. XOLAIR [Suspect]
     Indication: RESPIRATORY DISORDER

REACTIONS (3)
  - ASTHMATIC CRISIS [None]
  - DERMATITIS ALLERGIC [None]
  - HYPERSENSITIVITY [None]
